FAERS Safety Report 13594321 (Version 1)
Quarter: 2017Q2

REPORT INFORMATION
  Report Type: Report from Study
  Country: CN (occurrence: CN)
  Receive Date: 20170530
  Receipt Date: 20170530
  Transmission Date: 20170830
  Serious: Yes (Other)
  Sender: FDA-Public Use
  Company Number: PHHY2017CN078436

PATIENT
  Age: 32 Year
  Sex: Male

DRUGS (107)
  1. MYFORTIC [Suspect]
     Active Substance: MYCOPHENOLATE SODIUM
     Dosage: 720 MG, QD
     Route: 065
     Dates: start: 20160825
  2. TACROLIMUS. [Suspect]
     Active Substance: TACROLIMUS
     Dosage: 4.5 MG, QD
     Route: 065
     Dates: start: 20160726, end: 20160801
  3. TACROLIMUS. [Suspect]
     Active Substance: TACROLIMUS
     Dosage: 5 MG, QD
     Route: 065
     Dates: start: 20160506, end: 20160506
  4. TACROLIMUS. [Suspect]
     Active Substance: TACROLIMUS
     Dosage: 6 MG, QD
     Route: 065
     Dates: start: 20160430, end: 20160503
  5. SODIUM BICARBONATE. [Concomitant]
     Active Substance: SODIUM BICARBONATE
     Dosage: 250 ML, QD
     Route: 042
     Dates: start: 20160503, end: 20160503
  6. ALPROSTADIL. [Concomitant]
     Active Substance: ALPROSTADIL
     Dosage: 20 UG, QD
     Route: 042
     Dates: start: 20160708, end: 20160709
  7. COBAMAMIDE [Concomitant]
     Active Substance: COBAMAMIDE
     Indication: ANAEMIA
     Dosage: 0.75 MG, TID
     Route: 048
     Dates: start: 20160714, end: 20160817
  8. DIAMMONIUM GLYCYRRHIZINATE [Concomitant]
     Active Substance: HERBALS
     Indication: PROPHYLAXIS
     Dosage: 100 MG, BID
     Route: 048
     Dates: start: 20160503, end: 20160506
  9. LANSOPRAZOLE. [Concomitant]
     Active Substance: LANSOPRAZOLE
     Indication: PROPHYLAXIS
     Dosage: 60 MG, BID
     Route: 042
     Dates: start: 20160420, end: 20160421
  10. MICAFUNGIN SODIUM [Concomitant]
     Active Substance: MICAFUNGIN SODIUM
     Indication: PRODUCT USED FOR UNKNOWN INDICATION
     Dosage: 100 MG, QD
     Route: 042
     Dates: start: 20160415, end: 20160428
  11. MYFORTIC [Suspect]
     Active Substance: MYCOPHENOLATE SODIUM
     Indication: IMMUNOSUPPRESSANT DRUG THERAPY
     Dosage: 1080 MG, QD
     Route: 065
     Dates: start: 20160422, end: 20160824
  12. SODIUM BICARBONATE. [Concomitant]
     Active Substance: SODIUM BICARBONATE
     Indication: PRODUCT USED FOR UNKNOWN INDICATION
     Dosage: 125 ML, QD
     Route: 065
     Dates: start: 20160429, end: 20160429
  13. SODIUM BICARBONATE. [Concomitant]
     Active Substance: SODIUM BICARBONATE
     Dosage: 250 ML, QD
     Route: 042
     Dates: start: 20160412, end: 20160412
  14. CEFOPERAZONE SODIUM AND SULBACTAM SODIUM [Concomitant]
     Active Substance: CEFOPERAZONE SODIUM\SULBACTAM SODIUM
     Indication: INFECTION PROPHYLAXIS
     Dosage: 3000 MG, BID
     Route: 042
     Dates: start: 20160727, end: 20160727
  15. CEFOPERAZONE SODIUM AND SULBACTAM SODIUM [Concomitant]
     Active Substance: CEFOPERAZONE SODIUM\SULBACTAM SODIUM
     Dosage: 750 MG, QD
     Route: 042
     Dates: start: 20160412, end: 20160412
  16. COENZYME [Concomitant]
     Active Substance: UBIDECARENONE
     Indication: PROPHYLAXIS
     Dosage: 15 MG, QD
     Route: 042
     Dates: start: 20160412, end: 20160423
  17. FUROSEMIDE. [Concomitant]
     Active Substance: FUROSEMIDE
     Dosage: 60 MG, QD
     Route: 042
     Dates: start: 20160416, end: 20160416
  18. LIDOCAINE. [Concomitant]
     Active Substance: LIDOCAINE
     Indication: VASOSPASM
     Dosage: 10 ML, QD
     Route: 042
     Dates: start: 20160412, end: 20160412
  19. PHENOBARBITAL. [Concomitant]
     Active Substance: PHENOBARBITAL
     Indication: PRODUCT USED FOR UNKNOWN INDICATION
     Dosage: 100 MG, QD
     Route: 030
     Dates: start: 20160412, end: 20160412
  20. PHENTOLAMINE MESYLATE. [Concomitant]
     Active Substance: PHENTOLAMINE MESYLATE
     Dosage: 5 MG, QD
     Route: 042
     Dates: start: 20160412, end: 20160412
  21. TORASEMIDE [Concomitant]
     Active Substance: TORSEMIDE
     Dosage: 20 MG, QD
     Route: 042
     Dates: start: 20160420, end: 20160420
  22. MYFORTIC [Suspect]
     Active Substance: MYCOPHENOLATE SODIUM
     Indication: RENAL TRANSPLANT
     Dosage: 1440 MG, QD
     Route: 065
     Dates: start: 20160412, end: 20160421
  23. SERUM ALBUMIN HUMAN [Concomitant]
     Dosage: 100 ML, QD
     Route: 065
     Dates: start: 20160412, end: 20160412
  24. ALPROSTADIL. [Concomitant]
     Active Substance: ALPROSTADIL
     Indication: PROPHYLAXIS
     Dosage: 20 UG, QD
     Route: 042
     Dates: start: 20160708, end: 20160709
  25. ALPROSTADIL. [Concomitant]
     Active Substance: ALPROSTADIL
     Dosage: 20 UG, QD
     Route: 042
     Dates: start: 20160715, end: 20160721
  26. CEFOPERAZONE SODIUM AND SULBACTAM SODIUM [Concomitant]
     Active Substance: CEFOPERAZONE SODIUM\SULBACTAM SODIUM
     Dosage: 3000 MG, QD
     Route: 042
     Dates: start: 20160423, end: 20160423
  27. DOPAMINE [Concomitant]
     Active Substance: DOPAMINE\DOPAMINE HYDROCHLORIDE
     Dosage: 5 MG, QD
     Route: 042
     Dates: start: 20160412, end: 20160412
  28. FEBUXOSTAT. [Concomitant]
     Active Substance: FEBUXOSTAT
     Dosage: 40 MG, QD
     Route: 048
     Dates: start: 20160422, end: 20160429
  29. FUROSEMIDE. [Concomitant]
     Active Substance: FUROSEMIDE
     Dosage: 80 MG, QD
     Route: 042
     Dates: start: 20160412, end: 20160412
  30. LANSOPRAZOLE. [Concomitant]
     Active Substance: LANSOPRAZOLE
     Dosage: 60 UNK, UNK
     Route: 042
     Dates: start: 20160412, end: 20160412
  31. METHIONINE [Concomitant]
     Active Substance: METHIONINE
     Indication: PROPHYLAXIS
     Dosage: 220 MG, QD
     Route: 042
     Dates: start: 20160412, end: 20160423
  32. MOXIFLOXACIN HYDROCHLORIDE. [Concomitant]
     Active Substance: MOXIFLOXACIN HYDROCHLORIDE
     Indication: PRODUCT USED FOR UNKNOWN INDICATION
     Dosage: 400 MG, QD
     Route: 042
     Dates: start: 20160412, end: 20160412
  33. PHOSPHOCREATINE SODIUM [Concomitant]
     Active Substance: PHOSPHOCREATINE SODIUM
     Indication: PROPHYLAXIS
     Dosage: 1000 MG, QD
     Route: 042
     Dates: start: 20160412, end: 20160422
  34. TORASEMIDE [Concomitant]
     Active Substance: TORSEMIDE
     Dosage: 20 MG, BID
     Route: 042
     Dates: start: 20160418, end: 20160419
  35. METHYLPREDNISOLONE. [Suspect]
     Active Substance: METHYLPREDNISOLONE
     Dosage: 500 MG, QD
     Route: 065
     Dates: start: 20160414, end: 20160414
  36. TACROLIMUS. [Suspect]
     Active Substance: TACROLIMUS
     Indication: IMMUNOSUPPRESSANT DRUG THERAPY
     Dosage: 6 MG, QD
     Route: 065
     Dates: start: 20160414, end: 20160421
  37. TACROLIMUS. [Suspect]
     Active Substance: TACROLIMUS
     Dosage: 3 MG, QD
     Route: 065
     Dates: start: 20160802, end: 20160817
  38. ALPROSTADIL. [Concomitant]
     Active Substance: ALPROSTADIL
     Dosage: 20 UG, QD
     Route: 042
     Dates: start: 20160727, end: 20160727
  39. DIAMMONIUM GLYCYRRHIZINATE [Concomitant]
     Active Substance: HERBALS
     Dosage: 50 MG, BID
     Route: 048
     Dates: start: 20160507
  40. DOPAMINE [Concomitant]
     Active Substance: DOPAMINE\DOPAMINE HYDROCHLORIDE
     Dosage: 5 MG, QD
     Route: 042
     Dates: start: 20160416, end: 20160416
  41. FENOFIBRATE. [Concomitant]
     Active Substance: FENOFIBRATE
     Indication: LIPIDS INCREASED
     Dosage: 200 MG, QD
     Route: 048
     Dates: start: 20160806, end: 20160817
  42. FOLIC ACID. [Concomitant]
     Active Substance: FOLIC ACID
     Indication: ANAEMIA
     Dosage: 10 MG, TID
     Route: 048
     Dates: start: 20160714, end: 20160817
  43. INDAPAMIDE. [Concomitant]
     Active Substance: INDAPAMIDE
     Indication: BLOOD PRESSURE INCREASED
     Dosage: 1.5 MG, BID
     Route: 048
     Dates: start: 20160806, end: 20160817
  44. INSULIN [Concomitant]
     Active Substance: INSULIN NOS
     Indication: PRODUCT USED FOR UNKNOWN INDICATION
     Dosage: 16 IU, QD
     Route: 042
     Dates: start: 20160503, end: 20160503
  45. BETALOC [Concomitant]
     Active Substance: METOPROLOL TARTRATE
     Indication: BLOOD PRESSURE INCREASED
     Dosage: 47.5 MG, QD
     Route: 048
     Dates: start: 20160806, end: 20160817
  46. POTASSIUM CHLORIDE. [Concomitant]
     Active Substance: POTASSIUM CHLORIDE
     Dosage: 2000 MG, QD
     Route: 048
     Dates: start: 20160421, end: 20160421
  47. RECOMBINANT HUMAN ERYTHROPOIETIN [Concomitant]
     Active Substance: ERYTHROPOIETIN
     Dosage: 1 OT (WU), QD
     Route: 058
     Dates: start: 20160711, end: 20160711
  48. SIROLIMUS. [Concomitant]
     Active Substance: SIROLIMUS
     Indication: PROPHYLAXIS AGAINST TRANSPLANT REJECTION
     Dosage: 1 MG, QD
     Route: 048
     Dates: start: 20160801, end: 20160817
  49. SIROLIMUS. [Concomitant]
     Active Substance: SIROLIMUS
     Dosage: 2 MG, QD
     Route: 048
     Dates: start: 20160728, end: 20160801
  50. BASILIXIMAB [Suspect]
     Active Substance: BASILIXIMAB
     Indication: IMMUNOSUPPRESSANT DRUG THERAPY
     Dosage: 20 MG, QD
     Route: 065
     Dates: start: 20160416, end: 20160416
  51. PREDNISONE. [Suspect]
     Active Substance: PREDNISONE
     Indication: IMMUNOSUPPRESSANT DRUG THERAPY
     Dosage: 50 MG, QD
     Route: 065
     Dates: start: 20160415, end: 20160415
  52. PREDNISONE. [Suspect]
     Active Substance: PREDNISONE
     Dosage: 30 MG, QD
     Route: 065
     Dates: start: 20160417, end: 20160417
  53. PREDNISONE. [Suspect]
     Active Substance: PREDNISONE
     Dosage: 20 MG, QD
     Route: 065
     Dates: start: 20160418, end: 20160418
  54. TACROLIMUS. [Suspect]
     Active Substance: TACROLIMUS
     Dosage: 10 MG, QD
     Route: 065
     Dates: start: 20160419, end: 20160426
  55. TACROLIMUS. [Suspect]
     Active Substance: TACROLIMUS
     Dosage: 8 MG, QD
     Route: 065
     Dates: start: 20160427, end: 20160429
  56. SODIUM BICARBONATE. [Concomitant]
     Active Substance: SODIUM BICARBONATE
     Dosage: 250 ML, QD
     Dates: start: 20160722, end: 20160722
  57. ALPROSTADIL. [Concomitant]
     Active Substance: ALPROSTADIL
     Dosage: 20 UG, QD
     Route: 042
     Dates: start: 20160412, end: 20160503
  58. LIDOCAINE. [Concomitant]
     Active Substance: LIDOCAINE
     Dosage: 10 MG, QD
     Route: 042
     Dates: start: 20160412, end: 20160412
  59. VITAMIN B [Concomitant]
     Active Substance: VITAMIN B
     Indication: PROPHYLAXIS
     Dosage: 220 MG, QD
     Route: 042
     Dates: start: 20160412, end: 20160412
  60. MOXIFLOXACIN HYDROCHLORIDE. [Concomitant]
     Active Substance: MOXIFLOXACIN HYDROCHLORIDE
     Dosage: 1200 MG, QD
     Route: 048
     Dates: start: 20160726, end: 20160726
  61. NIFEDIPINE. [Concomitant]
     Active Substance: NIFEDIPINE
     Indication: BLOOD PRESSURE INCREASED
     Dosage: 30 MG, TID
     Route: 048
     Dates: start: 20160806, end: 20160817
  62. PHENTOLAMINE MESYLATE. [Concomitant]
     Active Substance: PHENTOLAMINE MESYLATE
     Indication: POLYURIA
     Dosage: 5 MG, BID
     Route: 042
     Dates: start: 20160413, end: 20160415
  63. PHENTOLAMINE MESYLATE. [Concomitant]
     Active Substance: PHENTOLAMINE MESYLATE
     Dosage: 5 MG, QD
     Route: 042
     Dates: start: 20160416, end: 20160416
  64. RECOMBINANT HUMAN ERYTHROPOIETIN [Concomitant]
     Active Substance: ERYTHROPOIETIN
     Indication: RED BLOOD CELL COUNT DECREASED
     Dosage: 1 OT (WU), QD
     Route: 058
     Dates: start: 20160802, end: 20160802
  65. RECOMBINANT HUMAN ERYTHROPOIETIN [Concomitant]
     Active Substance: ERYTHROPOIETIN
     Dosage: 1 OT (WU), QD
     Route: 058
     Dates: start: 20160426, end: 20160426
  66. RECOMBINANT HUMAN ERYTHROPOIETIN [Concomitant]
     Active Substance: ERYTHROPOIETIN
     Dosage: 1 OT (WU), QD
     Route: 058
     Dates: start: 20160719, end: 20160719
  67. TIGECYCLINE. [Concomitant]
     Active Substance: TIGECYCLINE
     Indication: INFECTION PROPHYLAXIS
     Dosage: 100 MG, QD
     Route: 042
     Dates: start: 20160418, end: 20160503
  68. TORASEMIDE [Concomitant]
     Active Substance: TORSEMIDE
     Indication: POLYURIA
     Dosage: 40 MG, BID
     Route: 042
     Dates: start: 20160417, end: 20160417
  69. BASILIXIMAB [Suspect]
     Active Substance: BASILIXIMAB
     Indication: RENAL TRANSPLANT
     Dosage: 20 MG, QD
     Route: 065
     Dates: start: 20160412, end: 20160412
  70. METHYLPREDNISOLONE. [Suspect]
     Active Substance: METHYLPREDNISOLONE
     Indication: IMMUNOSUPPRESSANT DRUG THERAPY
     Dosage: 1000 MG, QD
     Route: 065
     Dates: start: 20160412, end: 20160412
  71. TACROLIMUS. [Suspect]
     Active Substance: TACROLIMUS
     Dosage: 5 MG, QD
     Route: 065
     Dates: start: 20160724, end: 20160725
  72. SODIUM BICARBONATE. [Concomitant]
     Active Substance: SODIUM BICARBONATE
     Dosage: 250 ML, QD
     Dates: start: 20160412, end: 20160412
  73. SODIUM BICARBONATE. [Concomitant]
     Active Substance: SODIUM BICARBONATE
     Dosage: 250 ML, QD
     Route: 042
     Dates: start: 20160426, end: 20160426
  74. SERUM ALBUMIN HUMAN [Concomitant]
     Indication: PRODUCT USED FOR UNKNOWN INDICATION
     Dosage: 100 ML, QD
     Route: 042
     Dates: start: 20160419, end: 20160419
  75. SERUM ALBUMIN HUMAN [Concomitant]
     Dosage: 50 ML, QD
     Route: 042
     Dates: start: 20160422, end: 20160423
  76. GLUCOSE [Concomitant]
     Active Substance: DEXTROSE
     Indication: PRODUCT USED FOR UNKNOWN INDICATION
     Dosage: 60 ML, QD
     Route: 042
     Dates: start: 20160503, end: 20160503
  77. ALPROSTADIL. [Concomitant]
     Active Substance: ALPROSTADIL
     Indication: CARDIOVASCULAR DISORDER
     Dosage: 20 UG, QD
     Route: 042
     Dates: start: 20160504, end: 20160506
  78. FUROSEMIDE. [Concomitant]
     Active Substance: FUROSEMIDE
     Dosage: 20 MG, QD
     Route: 042
     Dates: start: 20160429, end: 20160429
  79. FUROSEMIDE. [Concomitant]
     Active Substance: FUROSEMIDE
     Dosage: 40 MG, QD
     Route: 042
     Dates: start: 20160503, end: 20160505
  80. HEPARIN SODIUM. [Concomitant]
     Active Substance: HEPARIN SODIUM
     Indication: PRODUCT USED FOR UNKNOWN INDICATION
     Dosage: 1.25 OT, QD
     Route: 042
     Dates: start: 20160412, end: 20160412
  81. LIDOCAINE. [Concomitant]
     Active Substance: LIDOCAINE
     Dosage: 10 ML, QD
     Route: 058
     Dates: start: 20160721, end: 20160721
  82. BETALOC [Concomitant]
     Active Substance: METOPROLOL TARTRATE
     Dosage: 47.5 MG, QD
     Route: 048
     Dates: start: 20160422
  83. MICAFUNGIN SODIUM [Concomitant]
     Active Substance: MICAFUNGIN SODIUM
     Dosage: 50 MG, QD
     Route: 042
     Dates: start: 20160412, end: 20160412
  84. POLYSACCHARIDE-IRON COMPLEX [Concomitant]
     Indication: ANAEMIA
     Dosage: 150 MG, QD
     Route: 048
     Dates: start: 20160714, end: 20160817
  85. SCOPOLAMINE [Concomitant]
     Active Substance: SCOPOLAMINE
     Indication: PRODUCT USED FOR UNKNOWN INDICATION
     Dosage: 0.3 MG, QD
     Dates: start: 20160412, end: 20160412
  86. PREDNISONE. [Suspect]
     Active Substance: PREDNISONE
     Dosage: 40 MG, QD
     Route: 065
     Dates: start: 20160416, end: 20160416
  87. PREDNISONE. [Suspect]
     Active Substance: PREDNISONE
     Dosage: 10 MG, QD
     Route: 065
     Dates: start: 20160419, end: 20160506
  88. ALANYL GLUTAMINE [Concomitant]
     Active Substance: ALANYL GLUTAMINE
     Indication: PRODUCT USED FOR UNKNOWN INDICATION
     Dosage: 2000 MG, QD
     Route: 042
     Dates: start: 20160412, end: 20160422
  89. ALLOPURINOL. [Concomitant]
     Active Substance: ALLOPURINOL
     Indication: BLOOD CREATININE INCREASED
     Dosage: 100 MG, QD
     Route: 048
     Dates: start: 20160713, end: 20160811
  90. DOPAMINE [Concomitant]
     Active Substance: DOPAMINE\DOPAMINE HYDROCHLORIDE
     Indication: POLYURIA
     Dosage: 5 MG, BID
     Route: 042
     Dates: start: 20160413, end: 20160415
  91. FUROSEMIDE. [Concomitant]
     Active Substance: FUROSEMIDE
     Indication: POLYURIA
     Dosage: 100 MG, BID
     Route: 042
     Dates: start: 20160412, end: 20160412
  92. NIFEDIPINE. [Concomitant]
     Active Substance: NIFEDIPINE
     Dosage: 30 MG, BID
     Route: 048
     Dates: start: 20160422
  93. PRAZOSIN. [Concomitant]
     Active Substance: PRAZOSIN
     Indication: BLOOD PRESSURE INCREASED
     Dosage: 1 MG, TID
     Route: 048
     Dates: start: 20160809, end: 20160817
  94. RIBOFLAVIN SODIUM PHOSPHATE [Concomitant]
     Indication: PRODUCT USED FOR UNKNOWN INDICATION
     Dosage: 20 MG, QD
     Route: 042
     Dates: start: 20160412, end: 20160422
  95. TORASEMIDE [Concomitant]
     Active Substance: TORSEMIDE
     Dosage: 40 MG, QD
     Route: 042
     Dates: start: 20160413, end: 20160416
  96. TACROLIMUS. [Suspect]
     Active Substance: TACROLIMUS
     Dosage: 5 MG, QD
     Route: 065
     Dates: start: 20160504, end: 20160505
  97. POTASSIUM CHLORIDE. [Concomitant]
     Active Substance: POTASSIUM CHLORIDE
     Indication: PROPHYLAXIS
     Dosage: 30 ML, QD
     Route: 048
     Dates: start: 20160420, end: 20160420
  98. SERUM ALBUMIN HUMAN [Concomitant]
     Dosage: 100 ML, QD
     Route: 042
     Dates: start: 20160420, end: 20160421
  99. ASPIRIN. [Concomitant]
     Active Substance: ASPIRIN
     Indication: PROPHYLAXIS
     Dosage: 100 MG, QD
     Route: 048
     Dates: start: 20160506, end: 20160506
  100. FEBUXOSTAT. [Concomitant]
     Active Substance: FEBUXOSTAT
     Indication: PROPHYLAXIS
     Dosage: 20 MG, QD
     Route: 048
     Dates: start: 20160416, end: 20160421
  101. FELODIPINE. [Concomitant]
     Active Substance: FELODIPINE
     Indication: BLOOD PRESSURE INCREASED
     Dosage: 5 MG, QD
     Route: 048
     Dates: start: 20160815, end: 20160817
  102. FUROSEMIDE. [Concomitant]
     Active Substance: FUROSEMIDE
     Dosage: 100 MG, QD
     Route: 042
     Dates: start: 20160414, end: 20160415
  103. FUROSEMIDE. [Concomitant]
     Active Substance: FUROSEMIDE
     Dosage: 80 MG, QD
     Route: 042
     Dates: start: 20160413, end: 20160415
  104. LIDOCAINE. [Concomitant]
     Active Substance: LIDOCAINE
     Indication: POLYURIA
     Dosage: 10 ML, QD
     Route: 042
     Dates: start: 20160414, end: 20160414
  105. LINEZOLID. [Concomitant]
     Active Substance: LINEZOLID
     Indication: PRODUCT USED FOR UNKNOWN INDICATION
     Dosage: 600 MG, BID
     Route: 042
     Dates: start: 20160412, end: 20160418
  106. METOCLOPRAMIDE. [Concomitant]
     Active Substance: METOCLOPRAMIDE
     Indication: PROPHYLAXIS
     Dosage: 10 MG, QD
     Route: 030
     Dates: start: 20160421, end: 20160421
  107. POTASSIUM CHLORIDE. [Concomitant]
     Active Substance: POTASSIUM CHLORIDE
     Indication: PRODUCT USED FOR UNKNOWN INDICATION
     Dosage: 1500 MG, TID
     Route: 048
     Dates: start: 20160420, end: 20160420

REACTIONS (5)
  - Haemoglobin decreased [Unknown]
  - Urinary tract infection [Recovering/Resolving]
  - Protein urine present [Unknown]
  - Blood urea increased [Unknown]
  - Glomerular filtration rate decreased [Unknown]

NARRATIVE: CASE EVENT DATE: 20160415
